FAERS Safety Report 9567092 (Version 1)
Quarter: 2013Q3

REPORT INFORMATION
  Report Type: Spontaneous
  Country: US (occurrence: US)
  Receive Date: 20130930
  Receipt Date: 20130930
  Transmission Date: 20140515
  Serious: No
  Sender: FDA-Public Use
  Company Number: US-AMGEN-USASP2012061928

PATIENT
  Sex: Female
  Weight: 53.97 kg

DRUGS (3)
  1. ENBREL [Suspect]
     Indication: JUVENILE IDIOPATHIC ARTHRITIS
     Dosage: 50 MG, QWK
     Route: 058
  2. ARTHROTEC [Concomitant]
     Dosage: 50 TAB
  3. ESTROGEL [Concomitant]
     Dosage: UNK

REACTIONS (1)
  - Dry mouth [Unknown]
